FAERS Safety Report 8233706-7 (Version None)
Quarter: 2012Q1

REPORT INFORMATION
  Report Type: 
  Country: None (occurrence: None)
  Receive Date: 20120321
  Receipt Date: 20120309
  Transmission Date: 20120608
  Serious: Yes (Other)
  Sender: FDA-Public Use
  Company Number: AUR-APL-2012-01444

PATIENT
  Age: 25 Year
  Sex: Female

DRUGS (5)
  1. DIAZEPAM [Suspect]
     Indication: AKATHISIA
  2. CANNABIS (CANNABIS SATIVA) [Suspect]
     Indication: MARITAL PROBLEM
  3. BENZODIAZEPINES (BENZODIAZEPINE DERIVATIVES) [Suspect]
     Indication: AKATHISIA
  4. CITALOPRAM HYDROBROMIDE [Suspect]
     Indication: MARITAL PROBLEM
  5. VENLAFAXINE [Suspect]
     Indication: DEPRESSION

REACTIONS (9)
  - DRUG DEPENDENCE [None]
  - DEPRESSION [None]
  - AGGRESSION [None]
  - SELF-INJURIOUS IDEATION [None]
  - SUICIDE ATTEMPT [None]
  - AKATHISIA [None]
  - CONDITION AGGRAVATED [None]
  - ABNORMAL BEHAVIOUR [None]
  - ATTENTION-SEEKING BEHAVIOUR [None]
